FAERS Safety Report 5273087-4 (Version None)
Quarter: 2007Q1

REPORT INFORMATION
  Report Type: 
  Country: None (occurrence: None)
  Receive Date: 20070316
  Receipt Date: 20070306
  Transmission Date: 20070707
  Serious: Yes (Death, Hospitalization)
  Sender: FDA-Public Use
  Company Number: 2006SP008115

PATIENT
  Age: 63 Year
  Sex: Male

DRUGS (4)
  1. TEMOZOLOMIDE (S-P)  (TEMOZOLOMIDE) [Suspect]
     Indication: GLIOMA
     Dosage: 200 MG;QD;PO
     Route: 048
     Dates: start: 20061101, end: 20061105
  2. PROCARBAZINE [Concomitant]
  3. CCNU [Concomitant]
  4. VINCRISTINE [Concomitant]

REACTIONS (7)
  - BLOOD CULTURE POSITIVE [None]
  - CONVULSION [None]
  - LOWER RESPIRATORY TRACT INFECTION [None]
  - NEUTROPENIA [None]
  - PLATELET COUNT DECREASED [None]
  - PNEUMONIA [None]
  - STAPHYLOCOCCAL INFECTION [None]
